FAERS Safety Report 16121665 (Version 1)
Quarter: 2019Q1

REPORT INFORMATION
  Report Type: Spontaneous
  Country: DK (occurrence: DK)
  Receive Date: 20190327
  Receipt Date: 20190327
  Transmission Date: 20190418
  Serious: Yes (Disabling)
  Sender: FDA-Public Use
  Company Number: DK-ACCORD-115786

PATIENT
  Age: 55 Year
  Sex: Female

DRUGS (1)
  1. CISPLATIN ACCORD [Suspect]
     Active Substance: CISPLATIN
     Indication: VULVAL CANCER
     Dosage: STYRKE: 1MG/ML
     Dates: start: 20150130, end: 20150306

REACTIONS (10)
  - Peripheral pulse decreased [Not Recovered/Not Resolved]
  - Muscle fatigue [Not Recovered/Not Resolved]
  - Pain in extremity [Not Recovered/Not Resolved]
  - Peripheral artery stenosis [Not Recovered/Not Resolved]
  - Paraesthesia [Not Recovered/Not Resolved]
  - Arthralgia [Not Recovered/Not Resolved]
  - Sensory disturbance [Not Recovered/Not Resolved]
  - Myalgia [Not Recovered/Not Resolved]
  - Lividity [Not Recovered/Not Resolved]
  - Intermittent claudication [Not Recovered/Not Resolved]

NARRATIVE: CASE EVENT DATE: 2015
